FAERS Safety Report 6804353-6 (Version None)
Quarter: 2010Q2

REPORT INFORMATION
  Report Type: 
  Country: None (occurrence: None)
  Receive Date: 20100628
  Receipt Date: 20070315
  Transmission Date: 20101027
  Serious: No
  Sender: FDA-Public Use
  Company Number: US-PFIZER INC-2007020289

PATIENT
  Age: 87 Year
  Sex: Male

DRUGS (1)
  1. PROCARDIA [Suspect]
     Indication: HYPERTENSION

REACTIONS (2)
  - BLOOD PRESSURE DECREASED [None]
  - BLOOD PRESSURE INCREASED [None]
